FAERS Safety Report 17418082 (Version 1)
Quarter: 2020Q1

REPORT INFORMATION
  Report Type: Spontaneous
  Country: US (occurrence: US)
  Receive Date: 20200214
  Receipt Date: 20200214
  Transmission Date: 20200409
  Serious: No
  Sender: FDA-Public Use
  Company Number: US-CELGENEUS-USA-20200203629

PATIENT
  Age: 54 Year
  Sex: Male
  Weight: 108.96 kg

DRUGS (2)
  1. POMALYST [Suspect]
     Active Substance: POMALIDOMIDE
     Dosage: 3 MILLIGRAM
     Route: 048
     Dates: start: 201904
  2. POMALYST [Suspect]
     Active Substance: POMALIDOMIDE
     Indication: PLASMA CELL MYELOMA
     Route: 048
     Dates: start: 20190313

REACTIONS (4)
  - Tooth disorder [Unknown]
  - Cough [Unknown]
  - Respiratory tract congestion [Unknown]
  - Muscle spasms [Unknown]

NARRATIVE: CASE EVENT DATE: 201903
